FAERS Safety Report 4803031-2 (Version None)
Quarter: 2005Q4

REPORT INFORMATION
  Report Type: 
  Country: None (occurrence: None)
  Receive Date: 20051019
  Receipt Date: 20051014
  Transmission Date: 20060501
  Serious: Yes (Other)
  Sender: FDA-Public Use
  Company Number: US-GLAXOSMITHKLINE-A0578307A

PATIENT
  Age: 70 Year
  Sex: Female

DRUGS (3)
  1. ADVAIR DISKUS 100/50 [Suspect]
     Indication: CHRONIC OBSTRUCTIVE PULMONARY DISEASE
     Route: 055
     Dates: end: 20051014
  2. TOPROL-XL [Concomitant]
  3. DIOVAN [Concomitant]

REACTIONS (4)
  - BLOOD BLISTER [None]
  - OEDEMA [None]
  - SKIN ULCER [None]
  - VASCULITIS [None]
